FAERS Safety Report 9247504 (Version 1)
Quarter: 2013Q2

REPORT INFORMATION
  Report Type: Spontaneous
  Country: FR (occurrence: FR)
  Receive Date: 20130423
  Receipt Date: 20130423
  Transmission Date: 20140414
  Serious: Yes (Other)
  Sender: FDA-Public Use
  Company Number: FR-009507513-1304FRA007964

PATIENT
  Age: 43 Year
  Sex: Female

DRUGS (2)
  1. SINGULAIR [Suspect]
     Dosage: 10 MG, QD
     Route: 048
     Dates: start: 20130129, end: 20130205
  2. SEREVENT DISKUS [Suspect]
     Dosage: 1 DF, BID
     Route: 002
     Dates: start: 20130129, end: 20130205

REACTIONS (5)
  - Oropharyngeal pain [Unknown]
  - Paraesthesia [Unknown]
  - Muscle spasms [Unknown]
  - Arthralgia [Unknown]
  - Myalgia [Unknown]
